FAERS Safety Report 17445087 (Version 2)
Quarter: 2020Q1

REPORT INFORMATION
  Report Type: Report from Study
  Country: CA (occurrence: CA)
  Receive Date: 20200221
  Receipt Date: 20200227
  Transmission Date: 20200409
  Serious: Yes (Hospitalization, Other)
  Sender: FDA-Public Use
  Company Number: CA-GLAXOSMITHKLINE-CA2020AMR025759

PATIENT
  Sex: Male

DRUGS (1)
  1. MEPOLIZUMAB [Suspect]
     Active Substance: MEPOLIZUMAB
     Indication: ASTHMA
     Dosage: 100 MG, Z (MONTHLY)
     Route: 042
     Dates: start: 20180907

REACTIONS (13)
  - Headache [Unknown]
  - Dizziness [Unknown]
  - Oxygen saturation abnormal [Unknown]
  - Hyperhidrosis [Unknown]
  - Cellulitis [Unknown]
  - Chronic obstructive pulmonary disease [Unknown]
  - Lower respiratory tract infection [Unknown]
  - Pyrexia [Unknown]
  - Infection [Unknown]
  - Malaise [Unknown]
  - Chest pain [Unknown]
  - Dyspnoea [Unknown]
  - Heart rate irregular [Unknown]
